FAERS Safety Report 7322447-6 (Version None)
Quarter: 2011Q1

REPORT INFORMATION
  Report Type: 
  Country: None (occurrence: None)
  Receive Date: 20110119
  Receipt Date: 20100726
  Transmission Date: 20110831
  Serious: No
  Sender: FDA-Public Use
  Company Number: A-NJ2009-32804

PATIENT
  Age: 60 Year
  Sex: Female
  Weight: 112.9 kg

DRUGS (5)
  1. TRACLEER [Suspect]
  2. TRACLEER [Suspect]
     Indication: PULMONARY ARTERIAL HYPERTENSION
     Dosage: 62.5 MG, BID, ORAL, 62.5 MG, BID, OD, ORAL, ORAL
     Route: 048
     Dates: start: 20100101, end: 20100909
  3. TRACLEER [Suspect]
     Indication: PULMONARY ARTERIAL HYPERTENSION
     Dosage: 62.5 MG, BID, ORAL, 62.5 MG, BID, OD, ORAL, ORAL
     Route: 048
     Dates: start: 20090921, end: 20100131
  4. TRACLEER [Suspect]
     Indication: PULMONARY ARTERIAL HYPERTENSION
     Dosage: 62.5 MG, BID, ORAL, 62.5 MG, BID, OD, ORAL, ORAL
     Route: 048
     Dates: start: 20100201, end: 20100726
  5. REVATIO [Concomitant]

REACTIONS (4)
  - PRURITUS [None]
  - ASPARTATE AMINOTRANSFERASE INCREASED [None]
  - LIVER FUNCTION TEST ABNORMAL [None]
  - INSOMNIA [None]
